FAERS Safety Report 10207010 (Version 1)
Quarter: 2014Q2

REPORT INFORMATION
  Report Type: Spontaneous
  Country: US (occurrence: None)
  Receive Date: 20140527
  Receipt Date: 20140527
  Transmission Date: 20141212
  Serious: Yes (Hospitalization)
  Sender: FDA-Public Use
  Company Number: None

PATIENT
  Age: 63 Year
  Sex: Male

DRUGS (6)
  1. PIPERACILLIN/TAZOBACTAM [Suspect]
     Indication: OSTEOMYELITIS
     Route: 042
     Dates: start: 20120507, end: 20120525
  2. ASPRIN [Concomitant]
  3. ATORVASTATIN [Concomitant]
  4. INSULIN [Concomitant]
  5. LISINOPRIL [Concomitant]
  6. METFORMIN [Concomitant]

REACTIONS (7)
  - Pyrexia [None]
  - Hyperhidrosis [None]
  - Leukopenia [None]
  - Thrombocytopenia [None]
  - Rash maculo-papular [None]
  - Rash pruritic [None]
  - Eating disorder [None]
